FAERS Safety Report 12564436 (Version 1)
Quarter: 2016Q3

REPORT INFORMATION
  Report Type: Spontaneous
  Country: US (occurrence: None)
  Receive Date: 20160715
  Receipt Date: 20160715
  Transmission Date: 20161109
  Serious: Yes (Hospitalization)
  Sender: FDA-Public Use
  Company Number: None

PATIENT
  Age: 22 Year
  Sex: Male

DRUGS (1)
  1. CUBICIN [Suspect]
     Active Substance: DAPTOMYCIN
     Indication: OSTEOARTHRITIS
     Dosage: Q 24 HOURS
     Route: 042
     Dates: start: 20160622, end: 20160622

REACTIONS (1)
  - Throat tightness [None]

NARRATIVE: CASE EVENT DATE: 20160623
